FAERS Safety Report 5387658-8 (Version None)
Quarter: 2007Q3

REPORT INFORMATION
  Report Type: 
  Country: None (occurrence: None)
  Receive Date: 20070712
  Receipt Date: 20070712
  Transmission Date: 20080115
  Serious: Yes (Hospitalization, Other)
  Sender: FDA-Public Use
  Company Number: None

PATIENT
  Age: 58 Year
  Sex: Female
  Weight: 60.3284 kg

DRUGS (1)
  1. DEPO-MEDROL [Suspect]
     Indication: BACK PAIN

REACTIONS (9)
  - ANURIA [None]
  - CONSTIPATION [None]
  - HEADACHE [None]
  - HYPERAESTHESIA [None]
  - HYPOAESTHESIA [None]
  - INCORRECT ROUTE OF DRUG ADMINISTRATION [None]
  - SENSATION OF HEAVINESS [None]
  - SENSORY LOSS [None]
  - SPINAL DISORDER [None]
